FAERS Safety Report 7458602-4 (Version None)
Quarter: 2011Q2

REPORT INFORMATION
  Report Type: 
  Country: None (occurrence: None)
  Receive Date: 20110503
  Receipt Date: 20110503
  Transmission Date: 20111010
  Serious: Yes (Life-Threatening, Hospitalization, Other)
  Sender: FDA-Public Use
  Company Number: None

PATIENT
  Sex: Female
  Weight: 68.0396 kg

DRUGS (2)
  1. LAMICTAL [Suspect]
     Indication: GENERALISED ANXIETY DISORDER
     Dosage: 100 MG ONCE DAILY PO
     Route: 048
     Dates: start: 20080701, end: 20080801
  2. LAMICTAL [Suspect]
     Indication: DEPRESSION
     Dosage: 100 MG ONCE DAILY PO
     Route: 048
     Dates: start: 20080701, end: 20080801

REACTIONS (4)
  - TOXIC EPIDERMAL NECROLYSIS [None]
  - BURNS THIRD DEGREE [None]
  - PHARYNGITIS STREPTOCOCCAL [None]
  - BURNS SECOND DEGREE [None]
